FAERS Safety Report 18127464 (Version 1)
Quarter: 2020Q3

REPORT INFORMATION
  Report Type: Spontaneous
  Country: US (occurrence: US)
  Receive Date: 20200810
  Receipt Date: 20200810
  Transmission Date: 20201103
  Serious: Yes (Death, Other)
  Sender: FDA-Public Use
  Company Number: US-DRREDDYS-USA/USA/20/0125662

PATIENT
  Sex: Female

DRUGS (4)
  1. RANITIDINE. [Suspect]
     Active Substance: RANITIDINE
     Route: 048
     Dates: start: 200101, end: 201905
  2. RANITIDINE. [Suspect]
     Active Substance: RANITIDINE
     Route: 048
     Dates: start: 200101, end: 201905
  3. RANITIDINE. [Suspect]
     Active Substance: RANITIDINE
     Indication: PRODUCT USED FOR UNKNOWN INDICATION
     Route: 048
     Dates: start: 200101, end: 201905
  4. RANITIDINE. [Suspect]
     Active Substance: RANITIDINE
     Route: 048
     Dates: start: 200101, end: 201905

REACTIONS (1)
  - Ovarian cancer [Fatal]
